FAERS Safety Report 9348587 (Version 4)
Quarter: 2013Q3

REPORT INFORMATION
  Report Type: Spontaneous
  Country: US (occurrence: US)
  Receive Date: 20130614
  Receipt Date: 20130729
  Transmission Date: 20140515
  Serious: No
  Sender: FDA-Public Use
  Company Number: US-PFIZER INC-2013178548

PATIENT
  Age: 78 Year
  Sex: Female
  Weight: 83.45 kg

DRUGS (3)
  1. LYRICA [Suspect]
     Indication: FIBROMYALGIA
     Dosage: UNK
  2. LYRICA [Suspect]
     Indication: ARTHRITIS
     Dosage: 150 MG, 1X/DAY
  3. MELOXICAM [Concomitant]
     Indication: ARTHRITIS
     Dosage: UNK

REACTIONS (2)
  - Pain [Unknown]
  - Tooth fracture [Unknown]
